FAERS Safety Report 7921092-9 (Version None)
Quarter: 2011Q4

REPORT INFORMATION
  Report Type: 
  Country: None (occurrence: None)
  Receive Date: 20111117
  Receipt Date: 20111114
  Transmission Date: 20120403
  Serious: Yes (Other)
  Sender: FDA-Public Use
  Company Number: US-MERCK-0907USA05805

PATIENT
  Age: 63 Year
  Sex: Female
  Weight: 49 kg

DRUGS (5)
  1. FOSAMAX [Suspect]
     Route: 048
     Dates: end: 20080701
  2. FOSAMAX [Suspect]
     Indication: OSTEOPOROSIS
     Route: 048
     Dates: start: 20000531, end: 20001201
  3. FOSAMAX [Suspect]
     Route: 048
     Dates: start: 20010101, end: 20080201
  4. DEPAKOTE [Concomitant]
     Indication: CONVULSION
     Route: 065
     Dates: start: 19890101
  5. FOSAMAX [Suspect]
     Route: 048
     Dates: start: 20040101

REACTIONS (42)
  - MUSCLE SPASTICITY [None]
  - HYPOAESTHESIA ORAL [None]
  - TENSION HEADACHE [None]
  - ORAL CAVITY FISTULA [None]
  - NEUTROPENIA [None]
  - BLOOD CHOLESTEROL INCREASED [None]
  - BONE DISORDER [None]
  - ANAEMIA [None]
  - APHASIA [None]
  - BENIGN BONE NEOPLASM [None]
  - GASTROENTERITIS VIRAL [None]
  - LYMPHOCYTOSIS [None]
  - MUSCLE SPASMS [None]
  - WHITE BLOOD CELL COUNT DECREASED [None]
  - CONVULSION [None]
  - ABSCESS [None]
  - DRUG HYPERSENSITIVITY [None]
  - LETHARGY [None]
  - ASTHENIA [None]
  - TOOTH DISORDER [None]
  - STARING [None]
  - OSTEOPENIA [None]
  - TEMPOROMANDIBULAR JOINT SYNDROME [None]
  - ROTATOR CUFF SYNDROME [None]
  - OSTEOMYELITIS [None]
  - ADVERSE DRUG REACTION [None]
  - OSTEOSCLEROSIS [None]
  - ORAL TORUS [None]
  - ORAL NEOPLASM [None]
  - ARTHRITIS [None]
  - ATROPHY [None]
  - CEREBROVASCULAR DISORDER [None]
  - CEREBRAL SMALL VESSEL ISCHAEMIC DISEASE [None]
  - OSTEONECROSIS OF JAW [None]
  - BASAL CELL CARCINOMA [None]
  - HYPOGLYCAEMIA [None]
  - HEADACHE [None]
  - HEAD INJURY [None]
  - VERTIGO [None]
  - ORAL INFECTION [None]
  - FALL [None]
  - DIZZINESS [None]
